FAERS Safety Report 25792606 (Version 3)
Quarter: 2025Q3

REPORT INFORMATION
  Report Type: Spontaneous
  Country: CN (occurrence: CN)
  Receive Date: 20250911
  Receipt Date: 20250922
  Transmission Date: 20251020
  Serious: Yes (Hospitalization, Other)
  Sender: BAYER HEALTHCARE PHARMACEUTICALS INC.
  Company Number: CN-BAYER-2025A117672

PATIENT
  Age: 67 Year
  Sex: Male

DRUGS (3)
  1. STIVARGA [Suspect]
     Active Substance: REGORAFENIB MONOHYDRATE
     Indication: Hepatic cancer
     Dosage: 120 MG, QD, CONTINUOUSLY FOR 21 DAYS AND THEN STOP FOR 7 DAYS
     Route: 048
     Dates: start: 20220930, end: 20221020
  2. SINTILIMAB [Suspect]
     Active Substance: SINTILIMAB
     Indication: Hepatic cancer
     Route: 041
     Dates: start: 20220930, end: 20220930
  3. ENTECAVIR [Concomitant]
     Active Substance: ENTECAVIR
     Dosage: 0.5 MG, QD
     Route: 048

REACTIONS (7)
  - Immune-mediated myositis [Recovered/Resolved]
  - Myalgia [Recovered/Resolved]
  - Immune-mediated myocarditis [Recovered/Resolved]
  - Immune-mediated hepatitis [Recovered/Resolved]
  - Hepatic function abnormal [Recovered/Resolved]
  - Product prescribing issue [None]
  - Incorrect dose administered [None]

NARRATIVE: CASE EVENT DATE: 20220930
